FAERS Safety Report 19498423 (Version 1)
Quarter: 2021Q3

REPORT INFORMATION
  Report Type: Other
  Country: FR (occurrence: FR)
  Receive Date: 20210706
  Receipt Date: 20210706
  Transmission Date: 20211014
  Serious: Yes (Hospitalization, Other)
  Sender: FDA-Public Use
  Company Number: FR-ASTELLAS-2021US024286

PATIENT
  Age: 3 Year
  Sex: Female

DRUGS (8)
  1. VANCOMYCINE [Suspect]
     Active Substance: VANCOMYCIN
     Indication: PYREXIA
     Dosage: 875 MG, ONCE DAILY (875 MG, QD)
     Route: 042
     Dates: start: 20210514, end: 20210522
  2. ACIDE TRANEXAMIQUE [Concomitant]
     Active Substance: TRANEXAMIC ACID
     Indication: PRODUCT USED FOR UNKNOWN INDICATION
     Dosage: UNK UNK, UNKNOWN FREQ.
     Route: 065
  3. PARACETAMOL [Concomitant]
     Active Substance: ACETAMINOPHEN
     Indication: PRODUCT USED FOR UNKNOWN INDICATION
     Dosage: UNK UNK, UNKNOWN FREQ.
     Route: 065
  4. DEXTRION [Concomitant]
     Active Substance: CALCIUM GLUCONATE\DEXTROSE\POTASSIUM CHLORIDE\SODIUM CHLORIDE
     Indication: PRODUCT USED FOR UNKNOWN INDICATION
     Dosage: UNK UNK, UNKNOWN FREQ.
     Route: 065
  5. AMPHOTERICIN B, LIPOSOME [Suspect]
     Active Substance: AMPHOTERICIN B
     Indication: PRODUCT USED FOR UNKNOWN INDICATION
     Dosage: 15 MG, ONCE DAILY (15 MG, QD)
     Route: 048
     Dates: start: 20210515, end: 20210527
  6. PANTOPRAZOLE [Suspect]
     Active Substance: PANTOPRAZOLE
     Indication: PYREXIA
     Dosage: 40 MG, ONCE DAILY (40MG, QD)
     Route: 042
     Dates: start: 20210516, end: 20210521
  7. TAZOCILLINE [Suspect]
     Active Substance: PIPERACILLIN SODIUM\TAZOBACTAM SODIUM
     Indication: PYREXIA
     Dosage: 1.4 G, ONCE DAILY (1.4 G, QD)
     Route: 042
     Dates: start: 20210501, end: 20210525
  8. BACTRIM [Suspect]
     Active Substance: SULFAMETHOXAZOLE\TRIMETHOPRIM
     Indication: PYREXIA
     Route: 048
     Dates: start: 20210517, end: 20210524

REACTIONS (1)
  - Drug reaction with eosinophilia and systemic symptoms [Recovering/Resolving]

NARRATIVE: CASE EVENT DATE: 20210520
